FAERS Safety Report 12455486 (Version 1)
Quarter: 2016Q2

REPORT INFORMATION
  Report Type: Spontaneous
  Country: ES (occurrence: ES)
  Receive Date: 20160610
  Receipt Date: 20160610
  Transmission Date: 20160815
  Serious: Yes (Death, Hospitalization, Other)
  Sender: FDA-Public Use
  Company Number: ES-CELGENEUS-ESP-2015073079

PATIENT

DRUGS (1)
  1. AZACITIDINE. [Suspect]
     Active Substance: AZACITIDINE
     Indication: ACUTE MYELOID LEUKAEMIA
     Dosage: 75 MILLIGRAM/SQ. METER
     Route: 058

REACTIONS (6)
  - Cardiopulmonary failure [Fatal]
  - Thrombocytopenia [Unknown]
  - Acute myeloid leukaemia recurrent [Unknown]
  - Cerebrovascular accident [Fatal]
  - Acute myeloid leukaemia [Unknown]
  - Neutropenia [Unknown]
